FAERS Safety Report 9110527 (Version 1)
Quarter: 2013Q1

REPORT INFORMATION
  Report Type: Spontaneous
  Country: US (occurrence: US)
  Receive Date: 20130219
  Receipt Date: 20130219
  Transmission Date: 20140127
  Serious: No
  Sender: FDA-Public Use
  Company Number: US-BRACCO-004933

PATIENT
  Age: 61 Year
  Sex: Male
  Weight: 119.7 kg

DRUGS (17)
  1. ISOVUE 370 [Suspect]
     Indication: ARTERIOGRAM CORONARY
     Route: 022
     Dates: start: 20100628, end: 20100628
  2. ISOVUE 370 [Suspect]
     Indication: CATHETERISATION CARDIAC
     Route: 022
     Dates: start: 20100628, end: 20100628
  3. ISOVUE 370 [Suspect]
     Indication: ANGIOGRAM PERIPHERAL
     Route: 022
     Dates: start: 20100628, end: 20100628
  4. ISOVUE 370 [Suspect]
     Indication: CARDIAC FUNCTION TEST
     Route: 022
     Dates: start: 20100628, end: 20100628
  5. ISOVUE 370 [Suspect]
     Indication: ANGINA UNSTABLE
     Route: 022
     Dates: start: 20100628, end: 20100628
  6. VISIPAQUE [Concomitant]
  7. MIDAZOLAM [Concomitant]
  8. LIDOCAINE [Concomitant]
  9. NORMAL SALINE [Concomitant]
     Dosage: 10 CC/HR
  10. HEPARIN [Concomitant]
     Dosage: 5000 UNITS
  11. FENTANYL [Concomitant]
  12. EPTIFIBATIDE [Concomitant]
  13. NITROGLYCERIN [Concomitant]
  14. NITROGLYCERIN [Concomitant]
     Route: 060
  15. MORPHINE SULFATE [Concomitant]
  16. CLOPIDOGREL [Concomitant]
  17. INTEGRILIN [Concomitant]
     Dosage: ^DROP^ AT 1.9 MCG/KG/MIN

REACTIONS (1)
  - Poor quality drug administered [Recovered/Resolved]
